FAERS Safety Report 4317597-2 (Version None)
Quarter: 2004Q1

REPORT INFORMATION
  Report Type: 
  Country: None (occurrence: None)
  Receive Date: 20040305
  Receipt Date: 20040202
  Transmission Date: 20041129
  Serious: Yes (Hospitalization)
  Sender: FDA-Public Use
  Company Number: US-SHR-03-018247

PATIENT
  Age: 65 Year
  Sex: Male
  Weight: 83.4 kg

DRUGS (12)
  1. CAMPATH [Suspect]
     Indication: CHRONIC LYMPHOCYTIC LEUKAEMIA
     Dosage: 30 MG, 3X/WEEK; 3MG, 2 DOSES; 10 MG, 1 DOSE  INTRAVENOUS
     Route: 042
     Dates: start: 20031029, end: 20031030
  2. CAMPATH [Suspect]
     Indication: CHRONIC LYMPHOCYTIC LEUKAEMIA
     Dosage: 30 MG, 3X/WEEK; 3MG, 2 DOSES; 10 MG, 1 DOSE  INTRAVENOUS
     Route: 042
     Dates: start: 20031114, end: 20031114
  3. CAMPATH [Suspect]
     Indication: CHRONIC LYMPHOCYTIC LEUKAEMIA
     Dosage: 30 MG, 3X/WEEK; 3MG, 2 DOSES; 10 MG, 1 DOSE  INTRAVENOUS
     Route: 042
     Dates: start: 20031106, end: 20031116
  4. RITUXAN [Concomitant]
  5. TYLENOL (CAPLET) [Concomitant]
  6. BENADRYL [Concomitant]
  7. HYDROCORTISONE [Concomitant]
  8. DEMEROL [Concomitant]
  9. BACTRIM DS [Concomitant]
  10. LOPRESSOR [Concomitant]
  11. DIFLUCAN [Concomitant]
  12. ALLOPURINOL [Concomitant]

REACTIONS (1)
  - CYTOMEGALOVIRUS INFECTION [None]
